FAERS Safety Report 12435868 (Version 2)
Quarter: 2016Q2

REPORT INFORMATION
  Report Type: Spontaneous
  Country: CN (occurrence: CN)
  Receive Date: 20160604
  Receipt Date: 20160624
  Transmission Date: 20160815
  Serious: Yes (Life-Threatening, Hospitalization)
  Sender: FDA-Public Use
  Company Number: CN-ASTRAZENECA-2016SE57695

PATIENT
  Sex: Female

DRUGS (3)
  1. BYETTA [Suspect]
     Active Substance: EXENATIDE
     Route: 058
     Dates: start: 2016, end: 2016
  2. BYETTA [Suspect]
     Active Substance: EXENATIDE
     Route: 058
     Dates: start: 201605, end: 20160525
  3. BYETTA [Suspect]
     Active Substance: EXENATIDE
     Route: 058
     Dates: start: 20160525

REACTIONS (9)
  - Asthenia [Unknown]
  - Urinary incontinence [Unknown]
  - Dizziness [Unknown]
  - Merycism [Unknown]
  - Blood pressure increased [Unknown]
  - Vomiting [Unknown]
  - Blood glucose decreased [Unknown]
  - Cardiac discomfort [Unknown]
  - Vertigo [Unknown]
